FAERS Safety Report 4695984-0 (Version None)
Quarter: 2005Q2

REPORT INFORMATION
  Report Type: 
  Country: None (occurrence: None)
  Receive Date: 20050621
  Receipt Date: 20050330
  Transmission Date: 20051028
  Serious: Yes (Hospitalization)
  Sender: FDA-Public Use
  Company Number: PHHO2005JP05412

PATIENT
  Age: 74 Year
  Sex: Female
  Weight: 49 kg

DRUGS (6)
  1. ASPIRIN [Concomitant]
     Indication: CEREBRAL INFARCTION
  2. SERMION [Concomitant]
     Indication: CEREBRAL INFARCTION
  3. NORVASC [Concomitant]
     Indication: HYPERTENSION
  4. ARTIST [Concomitant]
     Indication: HYPERTENSION
  5. DIOVAN [Suspect]
     Indication: HYPERTENSION
     Dosage: 40 MG, QD
     Route: 048
     Dates: start: 20030521, end: 20030604
  6. DIOVAN [Suspect]
     Dosage: 80 MG, QD
     Route: 048
     Dates: start: 20030604

REACTIONS (2)
  - SENSORY DISTURBANCE [None]
  - THROMBOTIC STROKE [None]
